FAERS Safety Report 8135487-4 (Version None)
Quarter: 2012Q1

REPORT INFORMATION
  Report Type: 
  Country: None (occurrence: None)
  Receive Date: 20120214
  Receipt Date: 20120203
  Transmission Date: 20120608
  Serious: Yes (Hospitalization, Other)
  Sender: FDA-Public Use
  Company Number: AR-AMGEN-ARGSP2012005961

PATIENT
  Age: 60 Year
  Sex: Female
  Weight: 78 kg

DRUGS (8)
  1. T4 [Concomitant]
     Dosage: UNK
     Route: 048
  2. TERAZOSIN HCL [Concomitant]
     Dosage: UNK
     Route: 048
  3. ENBREL [Suspect]
     Indication: RHEUMATOID ARTHRITIS
     Dosage: 50 MG, WEEKLY
     Route: 058
     Dates: start: 20040501, end: 20111001
  4. ENBREL [Suspect]
     Dosage: UNK
     Dates: start: 20111201, end: 20111201
  5. AMLODIPINE [Concomitant]
     Dosage: UNK
     Route: 048
  6. DICLOFENAC [Concomitant]
     Dosage: UNK
     Route: 048
  7. LOTRIAL                            /00574902/ [Concomitant]
     Dosage: UNK
     Route: 048
  8. DEBRIDAT FORT [Concomitant]
     Dosage: UNK
     Route: 048

REACTIONS (5)
  - KLEBSIELLA INFECTION [None]
  - RENAL FAILURE [None]
  - CARDIAC FAILURE [None]
  - STREPTOCOCCAL INFECTION [None]
  - URINARY TRACT INFECTION [None]
